FAERS Safety Report 7083849-9 (Version None)
Quarter: 2010Q4

REPORT INFORMATION
  Report Type: 
  Country: None (occurrence: None)
  Receive Date: 20101025
  Receipt Date: 20101013
  Transmission Date: 20110411
  Serious: Yes (Death, Hospitalization)
  Sender: FDA-Public Use
  Company Number: 107122

PATIENT
  Age: 25 Year
  Sex: Male

DRUGS (1)
  1. ETOPOSIDE [Suspect]
     Indication: TESTICULAR NEOPLASM

REACTIONS (3)
  - ACUTE MYELOID LEUKAEMIA [None]
  - ANAEMIA [None]
  - THROMBOCYTOPENIA [None]
